FAERS Safety Report 6191832-0 (Version None)
Quarter: 2009Q2

REPORT INFORMATION
  Report Type: 
  Country: None (occurrence: None)
  Receive Date: 20090515
  Receipt Date: 20090504
  Transmission Date: 20091009
  Serious: Yes (Hospitalization)
  Sender: FDA-Public Use
  Company Number: KR-PFIZER INC-2009194467

PATIENT
  Age: 59 Year

DRUGS (4)
  1. VARENICLINE TARTRATE [Suspect]
     Indication: SMOKING CESSATION THERAPY
     Dosage: 1 MG, 2X/DAY
     Route: 048
     Dates: start: 20081026, end: 20081123
  2. AUGMENTIN '125' [Concomitant]
     Indication: PNEUMONIA BACTERIAL
     Dosage: UNK
     Dates: start: 20081110
  3. CLINDAMYCIN [Concomitant]
     Indication: PNEUMONIA BACTERIAL
     Dosage: UNK
     Dates: start: 20081110
  4. ALL OTHER THERAPEUTIC PRODUCTS [Concomitant]
     Indication: PNEUMONIA BACTERIAL
     Dosage: UNK
     Dates: start: 20081110

REACTIONS (3)
  - CEREBRAL ARTERY STENOSIS [None]
  - VERTIGO [None]
  - VESTIBULAR NEURONITIS [None]
